FAERS Safety Report 20514056 (Version 3)
Quarter: 2023Q2

REPORT INFORMATION
  Report Type: Spontaneous
  Country: US (occurrence: US)
  Receive Date: 20220224
  Receipt Date: 20230612
  Transmission Date: 20230721
  Serious: Yes (Hospitalization)
  Sender: FDA-Public Use
  Company Number: US-AMNEAL PHARMACEUTICALS-2021-AMRX-02697

PATIENT
  Sex: Male

DRUGS (9)
  1. RYTARY [Suspect]
     Active Substance: CARBIDOPA\LEVODOPA
     Indication: Parkinsonism
     Dosage: 3 CAPSULES, 3X/DAY
     Route: 048
  2. RYTARY [Suspect]
     Active Substance: CARBIDOPA\LEVODOPA
     Indication: Parkinson^s disease
     Dosage: 12 CAPSULES, DAILY
     Route: 048
  3. RYTARY [Suspect]
     Active Substance: CARBIDOPA\LEVODOPA
     Dosage: 2 CAPS AT 7AM AND 11AM, 3 CAPS AT 3PM, 1 CAP AT 7PM AND 4 CAPS AS NEEDED (UP TO 12 CAPS PER DAY)
     Route: 048
     Dates: start: 20211026, end: 20211202
  4. RYTARY [Suspect]
     Active Substance: CARBIDOPA\LEVODOPA
     Dosage: 3 CAPSULES, 4X/DAY
     Route: 048
     Dates: start: 20211202
  5. RYTARY [Suspect]
     Active Substance: CARBIDOPA\LEVODOPA
     Dosage: 61.25-245 MG, 2 CAPSULES BY MOUTH AT 7AM, 3 CAPSULES BY MOUTH AT 11AM AND 3PM AND TAKE 1 CAPSULE AT
     Route: 048
  6. RYTARY [Suspect]
     Active Substance: CARBIDOPA\LEVODOPA
     Dosage: 23.75-95MG CAPSULE
     Route: 065
  7. RYTARY [Suspect]
     Active Substance: CARBIDOPA\LEVODOPA
     Dosage: 61.25MG-245MG TAKE BY MOUTH 2 CAPSULES AT 7AM, 2 CAPSULES AT 10AM, 2 CAPSULES AT 1PM, 2 CAPSULES AT
     Route: 048
  8. RYTARY [Suspect]
     Active Substance: CARBIDOPA\LEVODOPA
     Dosage: TAKING 1 CAPSULE 61.25-245MG + 2 CAPSULES OF 23.75-95 MG FOR THE FIRST 4 DOSAGES THEN FOR THE 5TH, 1
     Route: 048
  9. RYTARY [Suspect]
     Active Substance: CARBIDOPA\LEVODOPA
     Dosage: 9 CAPSULES, DAILY (61.25-245MG)
     Route: 048
     Dates: start: 20220901

REACTIONS (8)
  - Localised infection [Unknown]
  - Gait inability [Not Recovered/Not Resolved]
  - Back disorder [Unknown]
  - Fall [Unknown]
  - Asthenia [Not Recovered/Not Resolved]
  - Prescribed overdose [Unknown]
  - Dyskinesia [Unknown]
  - Product dose omission issue [Unknown]

NARRATIVE: CASE EVENT DATE: 20210101
